FAERS Safety Report 5984795-1 (Version None)
Quarter: 2008Q4

REPORT INFORMATION
  Report Type: 
  Country: None (occurrence: None)
  Receive Date: 20081202
  Receipt Date: 20081118
  Transmission Date: 20090506
  Serious: Yes (Other)
  Sender: FDA-Public Use
  Company Number: 1-16951719

PATIENT
  Sex: Female

DRUGS (8)
  1. PROPAFENONE HCL [Suspect]
     Dosage: 150 MG EVERY 12 HOURS, ORAL
     Route: 048
  2. VENLAFAXINE HCL [Suspect]
     Indication: DEPRESSION
     Dosage: 150 MG PER DAY, ORAL
     Route: 048
     Dates: start: 20060403, end: 20060501
  3. RAMIPRIL [Concomitant]
  4. TICLOPIDINE 250 MG [Concomitant]
  5. TORSEMIDE 10 MG [Concomitant]
  6. THEOPHYLLINE [Concomitant]
  7. ACETOMINOPHEN 500 MG [Concomitant]
  8. TRIAZOLAM 0.125 MG [Concomitant]

REACTIONS (3)
  - DRUG INTERACTION [None]
  - HALLUCINATION, VISUAL [None]
  - PSYCHOMOTOR HYPERACTIVITY [None]
